FAERS Safety Report 4562454-X (Version None)
Quarter: 2005Q1

REPORT INFORMATION
  Report Type: 
  Country: None (occurrence: None)
  Receive Date: 20050127
  Receipt Date: 20050118
  Transmission Date: 20050727
  Serious: Yes (Life-Threatening, Hospitalization, Other)
  Sender: FDA-Public Use
  Company Number: BR-BRISTOL-MYERS SQUIBB COMPANY-12829537

PATIENT
  Age: 43 Year
  Sex: Female
  Weight: 42 kg

DRUGS (12)
  1. DIDANOSINE [Suspect]
     Indication: HIV INFECTION
     Route: 048
     Dates: start: 20041004, end: 20050103
  2. CAPRAVIRINE [Suspect]
     Indication: HIV INFECTION
     Route: 048
     Dates: start: 20041004, end: 20050103
  3. KALETRA [Suspect]
     Indication: HIV INFECTION
     Dosage: 400 MG/100 MG TABLETS ^1.6 GRAMS^ TWICE DAILY
     Route: 048
     Dates: start: 20031020, end: 20050103
  4. TENOFOVIR [Suspect]
     Indication: HIV INFECTION
     Route: 048
     Dates: start: 20041004, end: 20050103
  5. LAMIVUDINE [Suspect]
     Indication: HIV INFECTION
     Route: 048
     Dates: start: 20041004, end: 20050103
  6. PREDNISONE [Concomitant]
     Route: 048
     Dates: start: 20040419, end: 20050103
  7. THEOPHYLLINE [Concomitant]
     Route: 048
     Dates: start: 20031119, end: 20050103
  8. MULTIVITAMIN [Concomitant]
     Route: 048
     Dates: start: 20040127, end: 20050103
  9. METFORMIN HCL [Concomitant]
     Route: 048
     Dates: start: 20041129, end: 20050103
  10. LOPERAMIDE HCL [Concomitant]
     Route: 048
     Dates: start: 20040112, end: 20050103
  11. BACTRIM [Concomitant]
     Indication: INFECTION PROPHYLAXIS
     Route: 048
     Dates: start: 19990101
  12. BACTRIM [Concomitant]
     Route: 048
     Dates: start: 19990101

REACTIONS (7)
  - ANOREXIA [None]
  - DIARRHOEA [None]
  - METABOLIC ACIDOSIS [None]
  - NAUSEA [None]
  - RENAL FAILURE [None]
  - VOMITING [None]
  - WEIGHT DECREASED [None]
